FAERS Safety Report 7254494 (Version 3)
Quarter: 2020Q3

REPORT INFORMATION
  Report Type: Report from Study
  Country: US (occurrence: US)
  Receive Date: 20100125
  Receipt Date: 20110916
  Transmission Date: 20201104
  Serious: Yes (Life-Threatening, Hospitalization)
  Sender: FDA-Public Use
  Company Number: US-ROCHE-678494

PATIENT
  Age: 42 Year
  Sex: Male
  Weight: 113.6 kg

DRUGS (7)
  1. DANOPREVIR. [Suspect]
     Active Substance: DANOPREVIR
     Dosage: LAST DOSE PRIOR TO SAE: 17 NOVEMBER 2009.
     Route: 048
     Dates: start: 20091014, end: 20091117
  2. RIBAVIRIN. [Suspect]
     Active Substance: RIBAVIRIN
     Dosage: LAST DOSE PRIOR TO SAE: 05 JANUARY 2010.
     Route: 048
     Dates: start: 20091014, end: 20100105
  3. ADVIL [Concomitant]
     Active Substance: IBUPROFEN
     Dates: start: 20091014
  4. PEGINTERFERON ALFA?2A. [Suspect]
     Active Substance: PEGINTERFERON ALFA-2A
     Dosage: LAST DOSE PRIOR TO SAE: 05 JANUARY 2010.
     Route: 058
     Dates: start: 20091014, end: 20100105
  5. TYLENOL [Concomitant]
     Active Substance: ACETAMINOPHEN
     Dates: start: 20091014
  6. LEXAPRO [Concomitant]
     Active Substance: ESCITALOPRAM OXALATE
     Dates: start: 20091029
  7. XANAX [Concomitant]
     Active Substance: ALPRAZOLAM
     Dates: start: 20091119

REACTIONS (2)
  - Deep vein thrombosis [Recovered/Resolved with Sequelae]
  - Pulmonary embolism [Recovered/Resolved with Sequelae]

NARRATIVE: CASE EVENT DATE: 20100102
